FAERS Safety Report 7013905-2 (Version None)
Quarter: 2010Q3

REPORT INFORMATION
  Report Type: 
  Country: None (occurrence: None)
  Receive Date: 20100924
  Receipt Date: 20100915
  Transmission Date: 20110219
  Serious: Yes (Life-Threatening)
  Sender: FDA-Public Use
  Company Number: FR-AMGEN-QUU438302

PATIENT
  Sex: Female
  Weight: 65 kg

DRUGS (4)
  1. NEULASTA [Suspect]
     Indication: CHEMOTHERAPY
     Route: 058
     Dates: start: 20100818, end: 20100818
  2. FLUOROURACIL [Concomitant]
  3. EPIRUBICIN [Concomitant]
  4. CYCLOPHOSPHAMIDE [Concomitant]

REACTIONS (5)
  - ERYTHEMA [None]
  - HYPERSENSITIVITY [None]
  - OEDEMA [None]
  - PRURITUS [None]
  - RASH [None]
